FAERS Safety Report 8980202 (Version 3)
Quarter: 2015Q2

REPORT INFORMATION
  Report Type: Report from Study
  Country: AU (occurrence: AU)
  Receive Date: 20121221
  Receipt Date: 20150616
  Transmission Date: 20150821
  Serious: Yes (Other)
  Sender: FDA-Public Use
  Company Number: AU-ROCHE-1168516

PATIENT
  Sex: Female

DRUGS (1)
  1. ACTEMRA [Suspect]
     Active Substance: TOCILIZUMAB
     Indication: RHEUMATOID ARTHRITIS
     Dosage: ON AN UNKNOWN DATE DRUG WAS RESTARTED.
     Route: 042
     Dates: start: 20110330

REACTIONS (3)
  - Lethargy [Unknown]
  - Headache [Unknown]
  - Malaise [Recovered/Resolved]
